FAERS Safety Report 18533816 (Version 1)
Quarter: 2020Q4

REPORT INFORMATION
  Report Type: Other
  Country: US (occurrence: US)
  Receive Date: 20201123
  Receipt Date: 20201123
  Transmission Date: 20210114
  Serious: No
  Sender: FDA-Public Use
  Company Number: US-ROCHE-2714724

PATIENT

DRUGS (1)
  1. OCREVUS [Suspect]
     Active Substance: OCRELIZUMAB
     Indication: MULTIPLE SCLEROSIS
     Route: 065

REACTIONS (6)
  - Migraine [Unknown]
  - JC polyomavirus test positive [Unknown]
  - Anxiety [Unknown]
  - Irritable bowel syndrome [Unknown]
  - Hypersensitivity [Unknown]
  - Depression [Unknown]
